FAERS Safety Report 26144995 (Version 1)
Quarter: 2025Q4

REPORT INFORMATION
  Report Type: Spontaneous
  Country: EU (occurrence: EU)
  Receive Date: 20251211
  Receipt Date: 20251211
  Transmission Date: 20260118
  Serious: Yes (Hospitalization)
  Sender: MERCK SHARP & DOHME LLC
  Company Number: None

PATIENT
  Age: 77 Year
  Sex: Male
  Weight: 68 kg

DRUGS (8)
  1. KEYTRUDA [Suspect]
     Active Substance: PEMBROLIZUMAB
     Indication: Sarcomatoid carcinoma
     Dosage: TIME INTERVAL: CYCLICAL: 13 CURES, STRENGTH: 50 MG
     Route: 042
     Dates: start: 20230217, end: 20241230
  2. ATORVASTATIN [Concomitant]
     Active Substance: ATORVASTATIN
     Indication: Dyslipidaemia
     Route: 048
  3. SERETIDE DISKUS 500/50 micrograms/dose, powder for inhalation in si... [Concomitant]
     Indication: Asthma
  4. COVERAM 10 mg/5 mg, tablet [Concomitant]
     Indication: Hypertension
     Route: 048
     Dates: start: 20240819, end: 20250306
  5. COVERAM 10 mg/5 mg, tablet [Concomitant]
     Indication: Hypertension
     Route: 048
     Dates: end: 20231116
  6. COVERAM 10 mg/5 mg, tablet [Concomitant]
     Indication: Hypertension
     Route: 048
     Dates: start: 20250312, end: 20250327
  7. OMEPRAZOLE [Concomitant]
     Active Substance: OMEPRAZOLE
     Indication: Gastrooesophageal reflux prophylaxis
     Route: 048
  8. DAFALGAN [Concomitant]
     Active Substance: ACETAMINOPHEN
     Indication: Pain
     Route: 048

REACTIONS (3)
  - Tubulointerstitial nephritis [Recovered/Resolved with Sequelae]
  - Mixed liver injury [Recovered/Resolved]
  - Lichenoid keratosis [Recovered/Resolved]

NARRATIVE: CASE EVENT DATE: 20231116
